FAERS Safety Report 7073906-5 (Version None)
Quarter: 2010Q4

REPORT INFORMATION
  Report Type: 
  Country: None (occurrence: None)
  Receive Date: 20101029
  Receipt Date: 20101027
  Transmission Date: 20110411
  Serious: Yes (Death, Other)
  Sender: FDA-Public Use
  Company Number: JP-SANOFI-AVENTIS-2010SA065575

PATIENT
  Age: 83 Year
  Sex: Male

DRUGS (1)
  1. ENOXAPARIN SODIUM [Suspect]
     Route: 058

REACTIONS (3)
  - INFECTION [None]
  - POST PROCEDURAL PNEUMONIA [None]
  - SEPSIS [None]
